FAERS Safety Report 7182576-7 (Version None)
Quarter: 2010Q4

REPORT INFORMATION
  Report Type: 
  Country: None (occurrence: None)
  Receive Date: 20101221
  Receipt Date: 20100514
  Transmission Date: 20110411
  Serious: No
  Sender: FDA-Public Use
  Company Number: US-AMGEN-TCS412569

PATIENT

DRUGS (4)
  1. ENBREL [Suspect]
     Indication: PSORIASIS
     Dosage: 50 MG, 2 TIMES/WK
     Route: 058
     Dates: start: 20100421, end: 20100512
  2. ENBREL [Suspect]
     Indication: PSORIATIC ARTHROPATHY
  3. ESCITALOPRAM [Concomitant]
  4. LOSARTAN POTASSIUM [Concomitant]

REACTIONS (5)
  - HYPOAESTHESIA [None]
  - INJECTION SITE ERYTHEMA [None]
  - INJECTION SITE PRURITUS [None]
  - PARAESTHESIA [None]
  - POOR QUALITY SLEEP [None]
